FAERS Safety Report 13532641 (Version 2)
Quarter: 2017Q2

REPORT INFORMATION
  Report Type: Spontaneous
  Country: US (occurrence: US)
  Receive Date: 20170510
  Receipt Date: 20170522
  Transmission Date: 20170830
  Serious: Yes (Other)
  Sender: FDA-Public Use
  Company Number: US-BAYER-2017-082699

PATIENT
  Age: 74 Year
  Sex: Male
  Weight: 82.54 kg

DRUGS (14)
  1. ATORVASTATIN [Concomitant]
     Active Substance: ATORVASTATIN
  2. BENADRYL COUGH [Concomitant]
  3. PRILOSEC [Concomitant]
     Active Substance: OMEPRAZOLE MAGNESIUM
  4. CENTRUM [MINERALS NOS,VITAMINS NOS] [Concomitant]
  5. FLUTICASONE. [Concomitant]
     Active Substance: FLUTICASONE
  6. MAGINEX DS [Concomitant]
  7. CLARITIN [Concomitant]
     Active Substance: LORATADINE
  8. VESICARE [Concomitant]
     Active Substance: SOLIFENACIN SUCCINATE
  9. ALEVE PM [Suspect]
     Active Substance: DIPHENHYDRAMINE HYDROCHLORIDE\NAPROXEN SODIUM
     Dosage: 2 DF, QD 6-8 MONTHS
     Route: 048
     Dates: end: 20170419
  10. BAYER LOW DOSE [Concomitant]
     Active Substance: ASPIRIN
     Dosage: 3 DF, PER WEEK
  11. PROMETHAZINE W/CODEINE [Concomitant]
     Active Substance: CODEINE\PROMETHAZINE
  12. IRON [Concomitant]
     Active Substance: IRON
  13. DESONIDE. [Concomitant]
     Active Substance: DESONIDE
  14. BENTYL [Concomitant]
     Active Substance: DICYCLOMINE HYDROCHLORIDE

REACTIONS (7)
  - Haemoglobin decreased [Recovered/Resolved]
  - Wrong technique in product usage process [Unknown]
  - Dyspepsia [None]
  - Gastric ulcer haemorrhage [Recovered/Resolved]
  - Gastrointestinal ulcer [Not Recovered/Not Resolved]
  - Incorrect drug administration duration [Unknown]
  - Product use in unapproved indication [Unknown]

NARRATIVE: CASE EVENT DATE: 20170420
